FAERS Safety Report 19283918 (Version 1)
Quarter: 2021Q2

REPORT INFORMATION
  Report Type: Spontaneous
  Country: US (occurrence: US)
  Receive Date: 20210521
  Receipt Date: 20210521
  Transmission Date: 20210717
  Serious: Yes (Other)
  Sender: FDA-Public Use
  Company Number: US-PFIZER INC-2021536156

PATIENT
  Sex: Female

DRUGS (1)
  1. GABAPENTIN. [Suspect]
     Active Substance: GABAPENTIN
     Dosage: 2800 MG, DAILY (800, 800 AND 1200MG)

REACTIONS (4)
  - Disease progression [Unknown]
  - Bradycardia [Unknown]
  - Restless legs syndrome [Unknown]
  - Diabetic neuropathy [Unknown]
